FAERS Safety Report 14586858 (Version 2)
Quarter: 2018Q2

REPORT INFORMATION
  Report Type: Spontaneous
  Country: FR (occurrence: FR)
  Receive Date: 20180301
  Receipt Date: 20180426
  Transmission Date: 20180711
  Serious: Yes (Life-Threatening, Hospitalization, Other)
  Sender: FDA-Public Use
  Company Number: FR-MYLANLABS-2018M1014539

PATIENT
  Age: 22 Year
  Sex: Male

DRUGS (23)
  1. SULFARLEM S 25 [Concomitant]
     Indication: PRODUCT USED FOR UNKNOWN INDICATION
     Dosage: 2 MG, TID
  2. FORLAX [Concomitant]
     Active Substance: POLYETHYLENE GLYCOL 4000
     Indication: PRODUCT USED FOR UNKNOWN INDICATION
     Dosage: 1 DF, QD
  3. LOXAPAC [Concomitant]
     Active Substance: LOXAPINE
     Dosage: UNK UNK, QD
     Route: 065
  4. TIAPRIDE [Concomitant]
     Active Substance: TIAPRIDE
     Dosage: 2 DF, PRN
  5. LEPONEX [Suspect]
     Active Substance: CLOZAPINE
     Indication: ABNORMAL BEHAVIOUR
  6. DAFALGAN [Concomitant]
     Active Substance: ACETAMINOPHEN
     Indication: PRODUCT USED FOR UNKNOWN INDICATION
     Dosage: 2 MG, BID
  7. TEMESTA (LORAZEPAM) [Concomitant]
     Active Substance: LORAZEPAM
     Indication: PRODUCT USED FOR UNKNOWN INDICATION
     Dosage: 4 MG, QD
  8. PARKINANE LP [Concomitant]
     Active Substance: TRIHEXYPHENIDYL HYDROCHLORIDE
     Dosage: 5 MG, BID
  9. TEMESTA (LORAZEPAM) [Concomitant]
     Active Substance: LORAZEPAM
     Dosage: 2.5 MG, PRN
  10. RISPERDAL [Concomitant]
     Active Substance: RISPERIDONE
     Indication: PRODUCT USED FOR UNKNOWN INDICATION
     Dosage: 6 MG, QD
  11. LEPONEX [Suspect]
     Active Substance: CLOZAPINE
     Indication: DELIRIUM
     Dosage: 25 MG, QD
     Dates: start: 20050512
  12. RIVOTRIL [Concomitant]
     Active Substance: CLONAZEPAM
     Indication: PRODUCT USED FOR UNKNOWN INDICATION
     Dosage: 1 MG, BID
  13. RISPERDAL [Concomitant]
     Active Substance: RISPERIDONE
     Dosage: 2 MG, QD
  14. LOXAPAC [Concomitant]
     Active Substance: LOXAPINE
     Dosage: UNK, TID
     Route: 065
  15. TEMESTA (LORAZEPAM) [Concomitant]
     Active Substance: LORAZEPAM
     Dosage: 1 MG, BID
  16. PARKINANE LP [Concomitant]
     Active Substance: TRIHEXYPHENIDYL HYDROCHLORIDE
     Indication: PRODUCT USED FOR UNKNOWN INDICATION
     Dosage: 2 DF, QD
  17. LEPONEX [Suspect]
     Active Substance: CLOZAPINE
     Indication: DELIRIUM
     Dosage: 600 MG, QD
     Route: 048
     Dates: start: 20050520, end: 20050714
  18. DAFALGAN [Concomitant]
     Active Substance: ACETAMINOPHEN
     Dosage: 500 MG, PRN
     Route: 065
  19. RIVOTRIL [Concomitant]
     Active Substance: CLONAZEPAM
     Dosage: 2 MG, BID
  20. RISPERDAL [Concomitant]
     Active Substance: RISPERIDONE
     Dosage: 4 MG, QD
  21. SULFARLEM S 25 [Concomitant]
     Dosage: UNK
     Route: 065
  22. LOXAPAC [Concomitant]
     Active Substance: LOXAPINE
     Indication: PRODUCT USED FOR UNKNOWN INDICATION
     Dosage: 2.5 DF, QD
  23. TIAPRIDE [Concomitant]
     Active Substance: TIAPRIDE
     Indication: PRODUCT USED FOR UNKNOWN INDICATION
     Dosage: UNK UNK, QD

REACTIONS (29)
  - Weight increased [Unknown]
  - Amblyopia [Unknown]
  - Tachyarrhythmia [Unknown]
  - Congestive cardiomyopathy [Unknown]
  - Head injury [Unknown]
  - Vomiting [Unknown]
  - Anxiety [Unknown]
  - Blood pressure fluctuation [Unknown]
  - Ventricular hypokinesia [Not Recovered/Not Resolved]
  - Chest pain [Not Recovered/Not Resolved]
  - Hepatitis B surface antibody positive [Unknown]
  - Hallucination [Unknown]
  - Cardiomegaly [Unknown]
  - Nausea [Unknown]
  - Body temperature increased [Unknown]
  - Left ventricular dysfunction [Recovering/Resolving]
  - Dyspnoea exertional [Not Recovered/Not Resolved]
  - Apparent death [Unknown]
  - Skin reaction [Unknown]
  - Confusional state [Unknown]
  - Drug level increased [Unknown]
  - Product use in unapproved indication [Recovered/Resolved]
  - Palpitations [Not Recovered/Not Resolved]
  - Mental disorder [Unknown]
  - Cataract [Unknown]
  - Fatigue [Not Recovered/Not Resolved]
  - Hyperhidrosis [Unknown]
  - Stress [Unknown]
  - Tachycardia [Unknown]

NARRATIVE: CASE EVENT DATE: 2005
